FAERS Safety Report 12970780 (Version 4)
Quarter: 2017Q1

REPORT INFORMATION
  Report Type: Report from Study
  Country: None (occurrence: US)
  Receive Date: 20161123
  Receipt Date: 20170216
  Transmission Date: 20170428
  Serious: Yes (Hospitalization)
  Sender: FDA-Public Use
  Company Number: US-ABBVIE-16P-163-1786599-00

PATIENT
  Age: 76 Year
  Sex: Female
  Weight: 73.9 kg

DRUGS (6)
  1. PREDNISONE. [Suspect]
     Active Substance: PREDNISONE
     Indication: B-CELL LYMPHOMA
     Dosage: ON DAYS 1-5 DATE OF MOST RECENT DOSE PRIOR EVENT ONSET 07/NOV/2016
     Route: 048
     Dates: start: 20161103
  2. RITUXIMAB [Suspect]
     Active Substance: RITUXIMAB
     Indication: B-CELL LYMPHOMA
     Dosage: DATE OF MOST RECENT DOSE PRIOR TO EVENT ONSET 03/NOV/2016
     Route: 042
     Dates: start: 20161103
  3. CYCLOPHOSPHAMIDE. [Suspect]
     Active Substance: CYCLOPHOSPHAMIDE
     Indication: B-CELL LYMPHOMA
     Dosage: DATE OF MOST RECENT DOSE PRIOR TO THE EVENT ONSET 03/NOV/2016
     Route: 042
     Dates: start: 20161103
  4. VINCRISTINE [Suspect]
     Active Substance: VINCRISTINE
     Indication: B-CELL LYMPHOMA
     Dosage: DATE OF THE MOST RECENT DOSE PRIOR TO THE EVENT 03/NOV/2016
     Route: 042
     Dates: start: 20161103
  5. DOXORUBICIN [Suspect]
     Active Substance: DOXORUBICIN
     Indication: B-CELL LYMPHOMA
     Dosage: DATE OF MOST RECENT DOSE PRIOR TO THE EVENT ONSET 03/NOV/2016
     Route: 042
     Dates: start: 20161103
  6. VENETOCLAX [Suspect]
     Active Substance: VENETOCLAX
     Indication: B-CELL LYMPHOMA
     Dosage: ON DAYS 4-10 OF CYCLE 1; MOST RECENT DOSE PRIOR TO EVENT 12/NOV/2016
     Route: 048
     Dates: start: 20161106

REACTIONS (1)
  - Acute kidney injury [Not Recovered/Not Resolved]

NARRATIVE: CASE EVENT DATE: 20161116
